FAERS Safety Report 10889196 (Version 1)
Quarter: 2015Q1

REPORT INFORMATION
  Report Type: Spontaneous
  Country: US (occurrence: US)
  Receive Date: 20150305
  Receipt Date: 20150305
  Transmission Date: 20150721
  Serious: Yes (Other)
  Sender: FDA-Public Use
  Company Number: US-BAYER-2015-030590

PATIENT

DRUGS (2)
  1. BAYER GENUINE ASPIRIN [Suspect]
     Active Substance: ASPIRIN
     Dosage: UNK
     Route: 048
  2. PLAVIX [Suspect]
     Active Substance: CLOPIDOGREL BISULFATE

REACTIONS (7)
  - Coronary artery bypass [Unknown]
  - Arterial disorder [Unknown]
  - Stent placement [Unknown]
  - Renal failure [Unknown]
  - Renal artery stenosis [Unknown]
  - Labelled drug-drug interaction medication error [None]
  - Incorrect drug administration duration [None]
